FAERS Safety Report 20116214 (Version 1)
Quarter: 2021Q4

REPORT INFORMATION
  Report Type: Other
  Country: CN (occurrence: None)
  Receive Date: 20211126
  Receipt Date: 20211126
  Transmission Date: 20220304
  Serious: Yes (Other)
  Sender: FDA-Public Use
  Company Number: CN-ROCHE-2960185

PATIENT

DRUGS (2)
  1. BEVACIZUMAB [Suspect]
     Active Substance: BEVACIZUMAB
     Indication: Colorectal cancer
     Dosage: DAY 1
     Route: 041
  2. GIMERACIL\OTERACIL\TEGAFUR [Suspect]
     Active Substance: GIMERACIL\OTERACIL\TEGAFUR
     Indication: Colorectal cancer
     Dosage: FOR 2 WEEKS FOLLOWED BY A 1-WEEK BREAK, 21 DAYS FOR A COURSE OF TREATMENT
     Route: 048

REACTIONS (2)
  - Leukopenia [Unknown]
  - Renal impairment [Unknown]
